FAERS Safety Report 7610849-X (Version None)
Quarter: 2011Q3

REPORT INFORMATION
  Report Type: 
  Country: None (occurrence: None)
  Receive Date: 20110715
  Receipt Date: 20110706
  Transmission Date: 20111222
  Serious: Yes (Death)
  Sender: FDA-Public Use
  Company Number: CH-US-EMD SERONO, INC.-7019187

PATIENT
  Sex: Female
  Weight: 59 kg

DRUGS (9)
  1. CRINONE [Concomitant]
     Route: 067
     Dates: start: 20100601
  2. GONAL-F [Suspect]
     Indication: IN VITRO FERTILISATION
  3. STIMULATIONS FOR IVF - PRODUCT UNKNOWN [Suspect]
     Indication: IN VITRO FERTILISATION
     Route: 058
  4. PERGOVERIS [Suspect]
     Indication: OVULATION INDUCTION
     Dosage: 3 AMPULES PER DAY
     Dates: start: 20090101
  5. CHORIONIC GONADOTROPIN [Suspect]
     Indication: PRODUCT USED FOR UNKNOWN INDICATION
     Dosage: 3 AMPULES PER DAY (TOTAL)
  6. CRINONE [Concomitant]
     Indication: PRODUCT USED FOR UNKNOWN INDICATION
     Route: 067
     Dates: start: 20091101
  7. PERGOVERIS [Suspect]
     Dosage: 3 AMPULES PER DAY
  8. PERGOVERIS [Suspect]
     Dosage: 3 AMPULES PER DAY
     Dates: end: 20100101
  9. CRINONE [Concomitant]
     Route: 067
     Dates: start: 20100301

REACTIONS (1)
  - MELANOMA RECURRENT [None]
